FAERS Safety Report 25024352 (Version 1)
Quarter: 2025Q1

REPORT INFORMATION
  Report Type: Spontaneous
  Country: FR (occurrence: FR)
  Receive Date: 20250228
  Receipt Date: 20250228
  Transmission Date: 20250409
  Serious: Yes (Other)
  Sender: ALEXION PHARMACEUTICALS
  Company Number: None

PATIENT
  Age: 16 Year
  Weight: 37 kg

DRUGS (2)
  1. ULTOMIRIS [Suspect]
     Active Substance: RAVULIZUMAB-CWVZ
     Indication: Atypical haemolytic uraemic syndrome
     Dosage: 2700 MILLIGRAM, Q8W
     Route: 065
  2. PENICILLIN V [Concomitant]
     Active Substance: PENICILLIN V
     Indication: Antibiotic prophylaxis
     Dosage: 10 MILLILITER, Q12H
     Route: 065

REACTIONS (1)
  - Anaphylactoid reaction [Recovered/Resolved]
